FAERS Safety Report 23053616 (Version 2)
Quarter: 2024Q4

REPORT INFORMATION
  Report Type: Spontaneous
  Country: GR (occurrence: GR)
  Receive Date: 20231011
  Receipt Date: 20241105
  Transmission Date: 20250115
  Serious: Yes (Other)
  Sender: NOVARTIS
  Company Number: GR-002147023-NVSC2023GR216050

PATIENT
  Age: 34 Year
  Sex: Female

DRUGS (11)
  1. CYCLOSPORINE [Suspect]
     Active Substance: CYCLOSPORINE
     Indication: Liver transplant
     Dosage: 100 MG, BID
     Route: 065
  2. METHYLPREDNISOLONE [Suspect]
     Active Substance: METHYLPREDNISOLONE
     Indication: Liver transplant
     Dosage: 1 MG, QD
     Route: 065
  3. ASPIRIN [Suspect]
     Active Substance: ASPIRIN
     Indication: Product used for unknown indication
     Dosage: 100 MG, QD
     Route: 065
  4. MAGNESIUM SULFATE [Suspect]
     Active Substance: MAGNESIUM SULFATE
     Indication: Product used for unknown indication
     Dosage: 4 G (LOAD)
     Route: 042
  5. LABETALOL [Suspect]
     Active Substance: LABETALOL
     Indication: Product used for unknown indication
     Dosage: 60 MG (IN DIVIDED DOSES)
     Route: 042
  6. BETAMETHASONE [Suspect]
     Active Substance: BETAMETHASONE
     Indication: Product used for unknown indication
     Dosage: UNK
     Route: 065
  7. BUPIVACAINE [Suspect]
     Active Substance: BUPIVACAINE
     Indication: Anaesthesia
     Dosage: 14 MG (HYPERBARIC)
     Route: 065
  8. FENTANYL [Suspect]
     Active Substance: FENTANYL
     Indication: Anaesthesia
     Dosage: 10 UG
     Route: 065
  9. MORPHINE [Suspect]
     Active Substance: MORPHINE
     Indication: Anaesthesia
     Dosage: 100 UG  (SUBARACHNOID INJECTION)
     Route: 065
  10. NOREPINEPHRINE [Suspect]
     Active Substance: NOREPINEPHRINE\NOREPINEPHRINE BITARTRATE
     Indication: Prophylaxis
     Dosage: 8 MCG/ML (PERIPHERAL DILUTE)
     Route: 065
  11. CEFOXITIN [Suspect]
     Active Substance: CEFOXITIN SODIUM
     Indication: Infection prophylaxis
     Dosage: 2 G
     Route: 042

REACTIONS (3)
  - Pre-eclampsia [Recovered/Resolved]
  - Premature delivery [Unknown]
  - Maternal exposure during pregnancy [Unknown]
